FAERS Safety Report 22048144 (Version 3)
Quarter: 2023Q2

REPORT INFORMATION
  Report Type: Spontaneous
  Country: ES (occurrence: ES)
  Receive Date: 20230301
  Receipt Date: 20230421
  Transmission Date: 20230722
  Serious: Yes (Other)
  Sender: FDA-Public Use
  Company Number: ES-ALIMERA SCIENCES LIMITED-ES-A16013-23-000043

PATIENT
  Sex: Male

DRUGS (1)
  1. ILUVIEN [Suspect]
     Active Substance: FLUOCINOLONE ACETONIDE
     Indication: Uveitis
     Dosage: 0.25 MICROGRAM, QD - UNKNOWN EYE
     Route: 031
     Dates: start: 20230215, end: 20230215

REACTIONS (3)
  - Choroidal effusion [Unknown]
  - Circumstance or information capable of leading to medication error [Unknown]
  - Device failure [Unknown]

NARRATIVE: CASE EVENT DATE: 20230215
